FAERS Safety Report 5242227-5 (Version None)
Quarter: 2007Q1

REPORT INFORMATION
  Report Type: 
  Country: None (occurrence: None)
  Receive Date: 20070212
  Receipt Date: 20070212
  Transmission Date: 20070707
  Serious: Yes (Hospitalization)
  Sender: FDA-Public Use
  Company Number: None

PATIENT
  Sex: Male
  Weight: 64.8644 kg

DRUGS (1)
  1. DONEPEZIL HCL [Suspect]
     Indication: DEMENTIA
     Dosage: 5MG DAILY PO
     Route: 048
     Dates: start: 20061031, end: 20061114

REACTIONS (3)
  - ABDOMINAL PAIN [None]
  - CONVULSION [None]
  - TREATMENT NONCOMPLIANCE [None]
